FAERS Safety Report 10043997 (Version 2)
Quarter: 2014Q1

REPORT INFORMATION
  Report Type: Spontaneous
  Country: US (occurrence: US)
  Receive Date: 20140328
  Receipt Date: 20140328
  Transmission Date: 20141002
  Serious: No
  Sender: FDA-Public Use
  Company Number: US-MYLANLABS-2013S1014494

PATIENT
  Sex: Female
  Weight: 95.26 kg

DRUGS (9)
  1. EMSAM (SELEGILINE TRANSDERMAL SYSTEM) [Suspect]
     Indication: DEPRESSION
     Dosage: QD
     Route: 062
     Dates: start: 201106
  2. SEROQUEL [Concomitant]
     Route: 048
  3. MICARDIS [Concomitant]
     Route: 048
  4. MOBIC [Concomitant]
     Route: 048
  5. NASCOBAL [Concomitant]
     Route: 045
  6. NEXIUM [Concomitant]
     Route: 048
  7. DIAZEPAM [Concomitant]
     Route: 048
  8. DICYCLOMINE [Concomitant]
     Route: 048
  9. FOLIC ACID [Concomitant]
     Route: 048

REACTIONS (1)
  - Fall [Not Recovered/Not Resolved]
